FAERS Safety Report 9375004 (Version 1)
Quarter: 2013Q2

REPORT INFORMATION
  Report Type: Spontaneous
  Country: TR (occurrence: TR)
  Receive Date: 20130628
  Receipt Date: 20130628
  Transmission Date: 20140414
  Serious: Yes (Death, Life-Threatening, Other)
  Sender: FDA-Public Use
  Company Number: PHHY2013TR065661

PATIENT
  Age: 78 Year
  Sex: Female

DRUGS (9)
  1. MEROPENEM [Suspect]
     Indication: ACINETOBACTER TEST POSITIVE
     Dosage: 1 G, BID
     Route: 042
  2. MEROPENEM [Suspect]
     Indication: STAPHYLOCOCCAL INFECTION
  3. GENTAMICIN [Suspect]
     Indication: INFECTION
     Dosage: 3 MG/KG FOR 10 DAYS
     Route: 042
  4. DICLOFENAC [Suspect]
     Indication: PAIN
     Route: 030
  5. PIPERACILIN/TAZOBACTAM [Concomitant]
     Dosage: 2.25 MG, BID
     Route: 042
  6. DIURETICS [Concomitant]
  7. DORIPENEM [Concomitant]
  8. TIGECYCLINE [Concomitant]
  9. RIFAMPICIN [Concomitant]

REACTIONS (8)
  - Death [Fatal]
  - Sepsis [Unknown]
  - Pancytopenia [Unknown]
  - Renal failure acute [Unknown]
  - Urine output decreased [Unknown]
  - Nausea [Unknown]
  - Vomiting [Unknown]
  - Blood creatinine increased [Unknown]
